FAERS Safety Report 23859533 (Version 1)
Quarter: 2024Q2

REPORT INFORMATION
  Report Type: Report from Study
  Country: BR (occurrence: BR)
  Receive Date: 20240515
  Receipt Date: 20240515
  Transmission Date: 20240716
  Serious: Yes (Other)
  Sender: FDA-Public Use
  Company Number: BR-JNJFOC-20240527523

PATIENT
  Age: 47 Year
  Sex: Female
  Weight: 75 kg

DRUGS (1)
  1. REMICADE [Suspect]
     Active Substance: INFLIXIMAB
     Indication: Rheumatoid arthritis
     Route: 041

REACTIONS (16)
  - Tracheal compression [Unknown]
  - Infusion related reaction [Unknown]
  - Malaise [Unknown]
  - Peripheral coldness [Unknown]
  - Trismus [Unknown]
  - Pain in jaw [Unknown]
  - Epiglottis dysfunction [Unknown]
  - Musculoskeletal chest pain [Unknown]
  - Feeling abnormal [Unknown]
  - Peripheral swelling [Unknown]
  - Hypoaesthesia [Unknown]
  - Anxiety [Unknown]
  - Feeling hot [Unknown]
  - Muscular weakness [Unknown]
  - Photophobia [Unknown]
  - Eye irritation [Unknown]
